FAERS Safety Report 17647617 (Version 4)
Quarter: 2020Q3

REPORT INFORMATION
  Report Type: Spontaneous
  Country: US (occurrence: US)
  Receive Date: 20200408
  Receipt Date: 20200804
  Transmission Date: 20201102
  Serious: No
  Sender: FDA-Public Use
  Company Number: NVSC2020US090859

PATIENT
  Sex: Female

DRUGS (2)
  1. TYKERB [Suspect]
     Active Substance: LAPATINIB DITOSYLATE
     Indication: BREAST CANCER
     Dosage: 1000 MG, QD
     Route: 048
     Dates: start: 20200310
  2. TYKERB [Suspect]
     Active Substance: LAPATINIB DITOSYLATE
     Indication: BREAST CANCER FEMALE
     Dosage: 1000 MG, QD (1 HOUR BEFORE OR 2 HOURS AFTER A MEAL FOR 21 DATS IB THEN 7 DAYS OFF EACH 28 DAY CYCLE)
     Route: 048
     Dates: start: 20200311

REACTIONS (9)
  - Musculoskeletal disorder [Unknown]
  - Blister [Unknown]
  - Skin exfoliation [Unknown]
  - Abdominal discomfort [Unknown]
  - Rhinorrhoea [Unknown]
  - Weight decreased [Unknown]
  - Diarrhoea [Unknown]
  - Dry skin [Unknown]
  - Back pain [Unknown]
